FAERS Safety Report 5140947-4 (Version None)
Quarter: 2006Q4

REPORT INFORMATION
  Report Type: 
  Country: None (occurrence: None)
  Receive Date: 20061025
  Receipt Date: 20061025
  Transmission Date: 20070319
  Serious: Yes (Hospitalization)
  Sender: FDA-Public Use
  Company Number: None

PATIENT
  Age: 83 Year
  Sex: Female
  Weight: 66.2252 kg

DRUGS (1)
  1. LISINOPRIL [Suspect]
     Dosage: 10 MG PO QD
     Route: 048
     Dates: start: 20060818

REACTIONS (1)
  - ANGIONEUROTIC OEDEMA [None]
